FAERS Safety Report 8017517-3 (Version None)
Quarter: 2011Q4

REPORT INFORMATION
  Report Type: 
  Country: None (occurrence: None)
  Receive Date: 20111228
  Receipt Date: 20111228
  Transmission Date: 20120403
  Serious: Yes (Hospitalization, Disabling)
  Sender: FDA-Public Use
  Company Number: None

PATIENT
  Age: 75 Year
  Sex: Female
  Weight: 72.1219 kg

DRUGS (1)
  1. BONIVA [Suspect]
     Dosage: EVERY 3 MO. INJECTIONS

REACTIONS (7)
  - WRIST FRACTURE [None]
  - LOWER LIMB FRACTURE [None]
  - FOOT FRACTURE [None]
  - ANKLE FRACTURE [None]
  - HAND FRACTURE [None]
  - FALL [None]
  - PAIN [None]
